FAERS Safety Report 16426763 (Version 1)
Quarter: 2019Q3

REPORT INFORMATION
  Report Type: Spontaneous
  Country: US (occurrence: US)
  Receive Date: 20190612
  Receipt Date: 20190612
  Transmission Date: 20191004
  Serious: Yes (Hospitalization)
  Sender: FDA-Public Use
  Company Number: None

PATIENT
  Sex: Female

DRUGS (9)
  1. ATENOLOL 50 MG [Concomitant]
     Active Substance: ATENOLOL
  2. OMEPRAZOLE CAP 20 MG [Concomitant]
  3. SIMVASTATIN TAB 20MG [Concomitant]
  4. ZOLPIDEM TAB 10MG [Concomitant]
  5. TRIAMT/HCT TAB 75-50MG [Concomitant]
  6. ENBREL [Suspect]
     Active Substance: ETANERCEPT
     Indication: PSORIATIC ARTHROPATHY
     Dosage: ?          OTHER FREQUENCY:WEEKLY;?
     Route: 058
     Dates: start: 20140327
  7. FOLIC ACID TAB 1000MCG [Concomitant]
  8. LEVOTHYROXINE TAB 125MCG [Concomitant]
  9. POT CHLORIDE CAP 10 MEQ ER [Concomitant]

REACTIONS (1)
  - Surgery [None]
